FAERS Safety Report 13462948 (Version 1)
Quarter: 2017Q2

REPORT INFORMATION
  Report Type: Spontaneous
  Country: US (occurrence: US)
  Receive Date: 20170420
  Receipt Date: 20170420
  Transmission Date: 20170830
  Serious: Yes (Other)
  Sender: FDA-Public Use
  Company Number: US-PFIZER INC-3233971

PATIENT
  Age: 43 Year
  Sex: Female
  Weight: 64.9 kg

DRUGS (3)
  1. LIDOCAINE HCL [Suspect]
     Active Substance: LIDOCAINE HYDROCHLORIDE
     Indication: INTRA-UTERINE CONTRACEPTIVE DEVICE INSERTION
  2. LIDOCAINE HCL [Suspect]
     Active Substance: LIDOCAINE HYDROCHLORIDE
     Indication: ANAESTHESIA
     Dosage: UP TO 10 CC, SINGLE
     Route: 015
     Dates: start: 20160301, end: 20160301
  3. LIDOCAINE HCL [Suspect]
     Active Substance: LIDOCAINE HYDROCHLORIDE
     Indication: INTRA-UTERINE CONTRACEPTIVE DEVICE REMOVAL
     Dosage: UP TO 10 CC, SINGLE
     Route: 042
     Dates: start: 20160329, end: 20160329

REACTIONS (9)
  - Seizure [Unknown]
  - Dyspnoea [Recovered/Resolved]
  - Swelling [Unknown]
  - Nausea [Recovered/Resolved]
  - Dyskinesia [Recovered/Resolved]
  - Pallor [Recovered/Resolved]
  - Incorrect route of drug administration [Unknown]
  - Dysphagia [Recovered/Resolved]
  - Hyperhidrosis [Recovered/Resolved]

NARRATIVE: CASE EVENT DATE: 20160301
